FAERS Safety Report 6869633-7 (Version None)
Quarter: 2010Q3

REPORT INFORMATION
  Report Type: 
  Country: None (occurrence: None)
  Receive Date: 20100721
  Receipt Date: 20100706
  Transmission Date: 20110219
  Serious: Yes (Other)
  Sender: FDA-Public Use
  Company Number: 1000012502

PATIENT
  Age: 15 Year
  Sex: Male

DRUGS (4)
  1. ESCITALOPRAM [Suspect]
     Indication: ANXIETY
     Dosage: 10 MG (10 MG, 1 IN 1 D), ORAL
     Route: 048
     Dates: start: 20100114, end: 20100208
  2. CLORAZEPATE DIPOTASSIUM [Concomitant]
  3. RISPERDAL [Concomitant]
  4. TOPIRAMATE (TABELTS) [Concomitant]

REACTIONS (2)
  - HYPOMANIA [None]
  - OFF LABEL USE [None]
